FAERS Safety Report 9282399 (Version 1)
Quarter: 2013Q2

REPORT INFORMATION
  Report Type: Spontaneous
  Country: US (occurrence: US)
  Receive Date: 20130510
  Receipt Date: 20130510
  Transmission Date: 20140414
  Serious: Yes (Death, Hospitalization)
  Sender: FDA-Public Use
  Company Number: US-BAYER-2013-056132

PATIENT
  Age: 17 Year
  Sex: Female
  Weight: 107.94 kg

DRUGS (6)
  1. YAZ [Suspect]
  2. YASMIN [Suspect]
  3. OCELLA [Suspect]
  4. VICODIN [Concomitant]
  5. DOXYCYCLINE [Concomitant]
  6. ZYRTEC [Concomitant]

REACTIONS (2)
  - Pulmonary embolism [Fatal]
  - Cardiac arrest [Fatal]
